FAERS Safety Report 24358325 (Version 1)
Quarter: 2024Q3

REPORT INFORMATION
  Report Type: Report from Study
  Country: GB (occurrence: GB)
  Receive Date: 20240924
  Receipt Date: 20240924
  Transmission Date: 20241016
  Serious: Yes (Hospitalization, Other)
  Sender: SAMSUNG BIOEPIS
  Company Number: GB-SAMSUNG BIOEPIS-SB-2024-24942

PATIENT
  Age: 61 Year
  Sex: Male

DRUGS (2)
  1. IMRALDI [Suspect]
     Active Substance: ADALIMUMAB
     Indication: Psoriasis
     Dosage: 40 MG/0.8 ML;
     Route: 058
  2. IMRALDI [Suspect]
     Active Substance: ADALIMUMAB
     Dosage: 40 MG/0.8 ML;
     Route: 058

REACTIONS (8)
  - Gastrointestinal carcinoma [Unknown]
  - Malaise [Unknown]
  - Joint swelling [Unknown]
  - Gait disturbance [Unknown]
  - Muscular weakness [Unknown]
  - Psoriasis [Unknown]
  - Drug ineffective [Unknown]
  - Product use issue [Unknown]
